FAERS Safety Report 22283523 (Version 1)
Quarter: 2023Q2

REPORT INFORMATION
  Report Type: Spontaneous
  Country: CA (occurrence: None)
  Receive Date: 20230502
  Receipt Date: 20230502
  Transmission Date: 20230721
  Serious: Yes (Disabling)
  Sender: FDA-Public Use
  Company Number: None

PATIENT
  Age: 34 Year
  Sex: Female
  Weight: 49.9 kg

DRUGS (6)
  1. KYLEENA [Suspect]
     Active Substance: LEVONORGESTREL
  2. RESTASIS [Concomitant]
     Active Substance: CYCLOSPORINE
  3. NALTREXONE [Concomitant]
     Active Substance: NALTREXONE
  4. OMEGA 3 [Concomitant]
     Active Substance: CAPSAICIN
  5. COLLAGEN [Concomitant]
     Active Substance: COLLAGEN
  6. VITAMINS [Concomitant]
     Active Substance: VITAMINS

REACTIONS (17)
  - Complication associated with device [None]
  - Muscular weakness [None]
  - Arthralgia [None]
  - Tendon pain [None]
  - Rash [None]
  - Paraesthesia [None]
  - Fatigue [None]
  - Night sweats [None]
  - Musculoskeletal stiffness [None]
  - Dry eye [None]
  - Dry mouth [None]
  - Tremor [None]
  - Peripheral coldness [None]
  - Insomnia [None]
  - Back pain [None]
  - Neck pain [None]
  - Pain [None]

NARRATIVE: CASE EVENT DATE: 20220914
